FAERS Safety Report 5795048-9 (Version None)
Quarter: 2008Q2

REPORT INFORMATION
  Report Type: 
  Country: None (occurrence: None)
  Receive Date: 20080630
  Receipt Date: 20080318
  Transmission Date: 20081010
  Serious: No
  Sender: FDA-Public Use
  Company Number: US-BRISTOL-MYERS SQUIBB COMPANY-14119150

PATIENT
  Age: 45 Year
  Sex: Female
  Weight: 59 kg

DRUGS (5)
  1. ORENCIA [Suspect]
     Indication: RHEUMATOID ARTHRITIS
     Dosage: GIVEN FIRST INFUSION
     Route: 042
     Dates: start: 20080317
  2. MOBIC [Concomitant]
  3. MEDROL [Concomitant]
  4. ASCORBIC ACID [Concomitant]
  5. VITAMIN D [Concomitant]

REACTIONS (2)
  - ENERGY INCREASED [None]
  - PRURITUS [None]
